FAERS Safety Report 5484396-8 (Version None)
Quarter: 2007Q4

REPORT INFORMATION
  Report Type: 
  Country: None (occurrence: None)
  Receive Date: 20071012
  Receipt Date: 20071004
  Transmission Date: 20080405
  Serious: Yes (Death, Hospitalization)
  Sender: FDA-Public Use
  Company Number: JP-MERCK-0706USA03142

PATIENT
  Age: 76 Year
  Sex: Male

DRUGS (7)
  1. PEPCID RPD [Suspect]
     Indication: REFLUX OESOPHAGITIS
     Route: 048
     Dates: start: 20060501, end: 20070612
  2. THEO-DUR [Concomitant]
     Indication: INTERSTITIAL LUNG DISEASE
     Route: 048
     Dates: start: 20060601, end: 20070612
  3. SINGULAIR [Concomitant]
     Indication: INTERSTITIAL LUNG DISEASE
     Route: 048
     Dates: start: 20060601, end: 20070612
  4. AMOBAN [Concomitant]
     Indication: INSOMNIA
     Route: 048
  5. NORVASC [Concomitant]
     Indication: HYPERTENSION
     Route: 048
     Dates: end: 20070619
  6. SEREVENT [Concomitant]
     Indication: INTERSTITIAL LUNG DISEASE
     Dates: start: 20060601, end: 20070612
  7. PREDNISOLONE [Concomitant]
     Indication: INTERSTITIAL LUNG DISEASE
     Route: 048
     Dates: start: 20060711

REACTIONS (1)
  - APLASTIC ANAEMIA [None]
